FAERS Safety Report 24899430 (Version 1)
Quarter: 2025Q1

REPORT INFORMATION
  Report Type: Other
  Country: JP (occurrence: JP)
  Receive Date: 20250129
  Receipt Date: 20250129
  Transmission Date: 20250409
  Serious: Yes (Life-Threatening)
  Sender: B BRAUN
  Company Number: JP-B.Braun Medical Inc.-2169954

PATIENT
  Age: 62 Year
  Sex: Female

DRUGS (6)
  1. MEROPENEM [Suspect]
     Active Substance: MEROPENEM
     Indication: Septic shock
  2. Carboplatin-etoposide [Concomitant]
  3. MICAFUNGIN [Concomitant]
     Active Substance: MICAFUNGIN SODIUM
  4. CORTICOSTEROID NOS [Concomitant]
     Active Substance: CORTICOSTEROID NOS
  5. NOREPINEPHRINE BITARTRATE [Concomitant]
     Active Substance: NOREPINEPHRINE BITARTRATE
  6. DURVALUMAB [Concomitant]
     Active Substance: DURVALUMAB

REACTIONS (1)
  - Drug ineffective [Unknown]
